FAERS Safety Report 15556635 (Version 1)
Quarter: 2018Q4

REPORT INFORMATION
  Report Type: Spontaneous
  Country: US (occurrence: US)
  Receive Date: 20181026
  Receipt Date: 20181026
  Transmission Date: 20190205
  Serious: Yes (Hospitalization, Other)
  Sender: FDA-Public Use
  Company Number: PHEH2018US045515

PATIENT
  Age: 63 Year
  Sex: Male

DRUGS (3)
  1. TASIGNA [Suspect]
     Active Substance: NILOTINIB
     Indication: CHRONIC MYELOID LEUKAEMIA
     Dosage: 500 MG, QD
     Route: 048
     Dates: start: 2015
  2. TASIGNA [Suspect]
     Active Substance: NILOTINIB
     Dosage: 300 MG, QD
     Route: 048
     Dates: start: 201604, end: 201607
  3. BOSULIF [Suspect]
     Active Substance: BOSUTINIB MONOHYDRATE
     Indication: CHRONIC MYELOID LEUKAEMIA
     Dosage: 3 DF, 100 MG, QD (AT NIGHT TIME AFTER DINNER)
     Route: 048
     Dates: start: 2015

REACTIONS (14)
  - Renal failure [Unknown]
  - Eye swelling [Recovered/Resolved]
  - Drug hypersensitivity [Unknown]
  - Weight increased [Unknown]
  - Cardiac failure congestive [Unknown]
  - Pigmentation disorder [Unknown]
  - Asthenia [Unknown]
  - Urticaria [Recovered/Resolved]
  - Gait disturbance [Unknown]
  - Sepsis [Unknown]
  - Ill-defined disorder [Unknown]
  - Influenza [Unknown]
  - Cytogenetic analysis abnormal [Unknown]
  - Fluid retention [Unknown]

NARRATIVE: CASE EVENT DATE: 201606
